FAERS Safety Report 5853483-4 (Version None)
Quarter: 2008Q3

REPORT INFORMATION
  Report Type: 
  Country: None (occurrence: None)
  Receive Date: 20080818
  Receipt Date: 20080429
  Transmission Date: 20090109
  Serious: No
  Sender: FDA-Public Use
  Company Number: WAES 0804USA06392

PATIENT

DRUGS (1)
  1. JANUVIA [Suspect]
     Indication: DIABETES MELLITUS
     Dosage: PO
     Route: 048

REACTIONS (4)
  - NAUSEA [None]
  - UPPER RESPIRATORY TRACT INFECTION [None]
  - VERTIGO [None]
  - VOMITING [None]
